FAERS Safety Report 25443270 (Version 1)
Quarter: 2025Q2

REPORT INFORMATION
  Report Type: Spontaneous
  Country: BG (occurrence: BG)
  Receive Date: 20250617
  Receipt Date: 20250617
  Transmission Date: 20250716
  Serious: Yes (Death, Hospitalization, Other)
  Sender: ROCHE
  Company Number: BG-ROCHE-10000309341

PATIENT
  Age: 49 Year
  Sex: Male

DRUGS (3)
  1. ROZLYTREK [Suspect]
     Active Substance: ENTRECTINIB
     Indication: Cholangiocarcinoma
     Route: 048
     Dates: start: 20240319, end: 20240419
  2. ROZLYTREK [Suspect]
     Active Substance: ENTRECTINIB
     Route: 048
     Dates: start: 20240519
  3. ROZLYTREK [Suspect]
     Active Substance: ENTRECTINIB
     Route: 048
     Dates: end: 20240614

REACTIONS (8)
  - Drug ineffective [Fatal]
  - Disease progression [Fatal]
  - Pyrexia [Recovered/Resolved]
  - Dysgeusia [Recovered/Resolved]
  - Cough [Recovered/Resolved]
  - Polyneuropathy [Recovered/Resolved]
  - Haematotoxicity [Recovered/Resolved with Sequelae]
  - Nephropathy toxic [Recovered/Resolved with Sequelae]

NARRATIVE: CASE EVENT DATE: 20240401
